FAERS Safety Report 8580010-3 (Version None)
Quarter: 2012Q3

REPORT INFORMATION
  Report Type: 
  Country: None (occurrence: None)
  Receive Date: 20120808
  Receipt Date: 20120801
  Transmission Date: 20120928
  Serious: Yes (Hospitalization, Other)
  Sender: FDA-Public Use
  Company Number: JP-VERTEX PHARMACEUTICALS INC.-AE-2012-007617

PATIENT
  Age: 63 Year
  Sex: Female

DRUGS (17)
  1. RIBAVIRIN [Concomitant]
     Route: 048
     Dates: start: 20120307, end: 20120501
  2. RIBAVIRIN [Concomitant]
     Route: 048
     Dates: start: 20120613
  3. CINAL [Concomitant]
     Route: 048
     Dates: end: 20120327
  4. URSO 250 [Concomitant]
     Route: 048
     Dates: end: 20120327
  5. MICARDIS [Concomitant]
     Route: 048
     Dates: end: 20120320
  6. RIBAVIRIN [Concomitant]
     Route: 048
     Dates: start: 20120516, end: 20120530
  7. MICARDIS [Concomitant]
     Route: 048
     Dates: end: 20120530
  8. TELAVIC [Suspect]
     Indication: HEPATITIS C
     Route: 048
     Dates: start: 20120207, end: 20120313
  9. TELAVIC [Suspect]
     Route: 048
     Dates: start: 20120404, end: 20120501
  10. PEGINTERFERON ALFA-2B [Concomitant]
     Route: 058
     Dates: start: 20120613
  11. XYZAL [Concomitant]
     Route: 048
     Dates: start: 20120613
  12. RIBAVIRIN [Concomitant]
     Indication: HEPATITIS C
     Route: 048
     Dates: start: 20120207, end: 20120306
  13. TELAVIC [Suspect]
     Route: 048
     Dates: start: 20120314, end: 20120403
  14. PEGINTERFERON ALFA-2B [Concomitant]
     Indication: HEPATITIS C
     Route: 058
     Dates: start: 20120207, end: 20120530
  15. RIBAVIRIN [Concomitant]
     Route: 048
     Dates: start: 20120502
  16. CINAL [Concomitant]
     Route: 048
  17. URSO 250 [Concomitant]
     Route: 048

REACTIONS (2)
  - SEPSIS [None]
  - ANAEMIA [None]
